FAERS Safety Report 25931521 (Version 1)
Quarter: 2025Q4

REPORT INFORMATION
  Report Type: Report from Study
  Country: US (occurrence: US)
  Receive Date: 20251016
  Receipt Date: 20251016
  Transmission Date: 20260117
  Serious: Yes (Hospitalization, Other)
  Sender: NOVARTIS
  Company Number: US-002147023-NVSC2025US158191

PATIENT
  Age: 72 Year
  Sex: Female

DRUGS (34)
  1. ENTRESTO [Suspect]
     Active Substance: SACUBITRIL\VALSARTAN
     Indication: Hypertension
     Dosage: 1 DOSAGE FORM, BID
     Route: 048
  2. CEFEPIME [Suspect]
     Active Substance: CEFEPIME HYDROCHLORIDE
     Indication: Product used for unknown indication
     Dosage: UNK
     Route: 065
  3. Dulcolax [Concomitant]
     Indication: Constipation
     Dosage: 10 MG, QD (1 TIME DAILY AS NEEDED) (SUPPOSITORY)
     Route: 054
     Dates: start: 20230822, end: 20230925
  4. TUMS ULTRA [Concomitant]
     Active Substance: CALCIUM CARBONATE
     Indication: Dyspepsia
     Dosage: 400 MG, Q6H (1000 MG), CHEWABLE TABLET
     Route: 048
     Dates: start: 20230822, end: 20230925
  5. ZOFRAN [Concomitant]
     Active Substance: ONDANSETRON HYDROCHLORIDE
     Indication: Nausea
     Dosage: 1 DOSAGE FORM, 4 MG ODT TABLET  30 MINUTES PRIOR TO EACH BOWEL PREP
     Route: 065
     Dates: start: 20240805, end: 20241216
  6. ZOFRAN [Concomitant]
     Active Substance: ONDANSETRON HYDROCHLORIDE
     Indication: Vomiting
     Dosage: 1 DOSAGE FORM, Q8H (TABLET), DISSOLVE TABLET ON TOP OF TONGUE WITH SALIVA, 30 MINUTES PRIOR TO EACH
     Route: 048
     Dates: start: 20250224
  7. ZOSYN [Concomitant]
     Active Substance: PIPERACILLIN SODIUM\TAZOBACTAM SODIUM
     Indication: Product used for unknown indication
     Dosage: 1 DOSAGE FORM, Q6H (4.5 GM FOR HOME INFUSION)
     Route: 042
     Dates: start: 20230822, end: 20230921
  8. MIRALAX [Concomitant]
     Active Substance: POLYETHYLENE GLYCOL 3350
     Indication: Constipation
     Dosage: 1 DOSAGE FORM, QD (17 GM POWER IN PACKET) AS NEEDED
     Route: 048
     Dates: start: 20230822, end: 20230925
  9. SENNA S [Concomitant]
     Active Substance: DOCUSATE SODIUM\SENNOSIDES
     Indication: Constipation
     Dosage: 1 DOSAGE FORM, BID (8.6-50 MG), TABLET (AS NEEDED)
     Route: 048
     Dates: start: 20230822, end: 20230925
  10. Vitamin b complex with vitamin c + folic acid [Concomitant]
     Indication: Product used for unknown indication
     Dosage: 1 DOSAGE FORM, QD (1 MG CAPSULE)
     Route: 048
     Dates: start: 20230823, end: 20240614
  11. TYLENOL [Concomitant]
     Active Substance: ACETAMINOPHEN
     Indication: Pain
     Dosage: 1 DOSAGE FORM, Q4H (325 MG TABLET)
     Route: 048
     Dates: start: 20210802
  12. TYLENOL [Concomitant]
     Active Substance: ACETAMINOPHEN
     Indication: Pyrexia
  13. ZYLOPRIM [Concomitant]
     Active Substance: ALLOPURINOL
     Indication: Product used for unknown indication
     Dosage: 1 DOSAGE FORM, BID (300 MG TABLET)
     Route: 048
     Dates: start: 20210616, end: 20230921
  14. ECOTRIN [Concomitant]
     Active Substance: ASPIRIN
     Indication: Product used for unknown indication
     Dosage: 1 DOSAGE FORM, QD (81 MG DELAYED RELAEASED TABLET)
     Route: 048
     Dates: start: 20170524, end: 20240614
  15. VITAMIN D3 [Concomitant]
     Active Substance: CHOLECALCIFEROL
     Indication: Product used for unknown indication
     Dosage: UNK, 1000 UNITS QD
     Route: 048
     Dates: end: 20240614
  16. FLUOXETINE [Concomitant]
     Active Substance: FLUOXETINE HYDROCHLORIDE
     Indication: Product used for unknown indication
     Dosage: 2 DOSAGE FORM, (40 MG) QD (20 MG CAPSULE)
     Route: 048
     Dates: start: 20230703, end: 20231108
  17. FLUOXETINE [Concomitant]
     Active Substance: FLUOXETINE HYDROCHLORIDE
     Dosage: 1 DOSAGE FORM, QD (40 MG CAPSULE)
     Route: 048
     Dates: start: 20240408, end: 20241116
  18. NORCO [Concomitant]
     Active Substance: ACETAMINOPHEN\HYDROCODONE BITARTRATE
     Indication: Product used for unknown indication
     Dosage: 1 DOSAGE FORM, TID (10-325 MG)
     Route: 048
     Dates: start: 20230802, end: 20230925
  19. NORCO [Concomitant]
     Active Substance: ACETAMINOPHEN\HYDROCODONE BITARTRATE
     Dosage: 1 DOSAGE FORM, TID (10-325 MG)
     Route: 048
     Dates: start: 20240914, end: 20241106
  20. NORCO [Concomitant]
     Active Substance: ACETAMINOPHEN\HYDROCODONE BITARTRATE
     Dosage: 1 DOSAGE FORM, TID (10-325 MG)
     Route: 048
     Dates: start: 20250404, end: 20250504
  21. BACTROBAN [Concomitant]
     Active Substance: MUPIROCIN CALCIUM
     Indication: Product used for unknown indication
     Dosage: UNK, QD, UNK, 2 % OINTMENT APPLY TO THE AFFECTED AREAS DAILY
     Route: 065
     Dates: start: 20230728, end: 20240501
  22. TORSEMIDE [Concomitant]
     Active Substance: TORSEMIDE
     Indication: Weight increased
     Dosage: 1 DOSAGE FORM, PRN (60 MG TABLET) NEEDED FOR WEIGHT GAIN OF MORE THAN 3 POUNDS OVER NIGHT OR MORE TH
     Route: 065
     Dates: start: 20230519, end: 20240408
  23. TORSEMIDE [Concomitant]
     Active Substance: TORSEMIDE
     Indication: Cardiac failure
     Dosage: 1 DOSAGE FORM, PRN (60 MG TABLET) NEEDED FOR WEIGHT GAIN OF MORE THAN 3 POUNDS OVER NIGHT OR MORE TH
     Route: 065
     Dates: start: 20240913
  24. VITAMIN E [Concomitant]
     Active Substance: .ALPHA.-TOCOPHEROL
     Indication: Product used for unknown indication
     Dosage: UNK, Q24H (400 UNIT) CAPSULE
     Route: 065
     Dates: end: 20240614
  25. Micro K [Concomitant]
     Indication: Product used for unknown indication
     Dosage: UNK (10 MEQ EXTENDED RELASE CAPSULE)
     Route: 065
  26. LEVAQUIN [Concomitant]
     Active Substance: LEVOFLOXACIN
     Indication: Product used for unknown indication
     Dosage: 1 DOSAGE FORM, QD (750 MG TABLET)
     Route: 048
     Dates: start: 20240911, end: 20250205
  27. LEVAQUIN [Concomitant]
     Active Substance: LEVOFLOXACIN
     Dosage: 1 DOSAGE FORM, QD (750 MG TABLET)
     Route: 048
     Dates: start: 20250318, end: 20250616
  28. LEVAQUIN [Concomitant]
     Active Substance: LEVOFLOXACIN
     Dosage: UNK
     Route: 042
  29. HERBALS\TURMERIC [Concomitant]
     Active Substance: HERBALS\TURMERIC
     Indication: Product used for unknown indication
     Dosage: UNK
     Route: 065
     Dates: end: 20230925
  30. XARELTO [Concomitant]
     Active Substance: RIVAROXABAN
     Indication: Product used for unknown indication
     Dosage: 1 DOSAGE FORM, QD (20 MG TABLET)
     Route: 048
     Dates: start: 20250418
  31. VITAMIN B COMPLEX [Concomitant]
     Active Substance: CYANOCOBALAMIN\DEXPANTHENOL\NIACINAMIDE\PYRIDOXINE HYDROCHLORIDE\RIBOFLAVIN 5^-PHOSPHATE SODIUM\THIA
     Indication: Product used for unknown indication
     Dosage: 1 DOSAGE FORM, QD (TABLET SUSUTAINED RELEASE)
     Route: 048
  32. SACCHAROMYCES CEREVISIAE [Concomitant]
     Active Substance: SACCHAROMYCES CEREVISIAE
     Indication: Product used for unknown indication
     Dosage: 1 DOSAGE FORM, BID (250 MG CAPSULE)
     Route: 048
     Dates: start: 20241012, end: 20241111
  33. VIBRAMYCIN [Concomitant]
     Active Substance: DOXYCYCLINE
     Indication: Product used for unknown indication
     Dosage: 1 DOSAGE FORM, QD (100 MG CAPSULE)
     Route: 048
     Dates: start: 20240911, end: 20250205
  34. SUPREP BOWEL PREP [Concomitant]
     Active Substance: MAGNESIUM SULFATE\POTASSIUM SULFATE\SODIUM SULFATE
     Indication: Product used for unknown indication
     Dosage: UNK (17.5-3.13-1.6 RECON SOL) MIX AS PER INSTRUCTIONS AND DRINK ACCORDING TO INSTRUCTION SHEET
     Route: 065
     Dates: start: 20240805, end: 20241216

REACTIONS (27)
  - Lymphoedema [Unknown]
  - Abscess limb [Recovering/Resolving]
  - Pseudomonas infection [Unknown]
  - Foot fracture [Unknown]
  - Fall [Unknown]
  - Cardiac failure congestive [Unknown]
  - Heart failure with preserved ejection fraction [Unknown]
  - Atrial fibrillation [Unknown]
  - Mitral valve incompetence [Unknown]
  - Acute kidney injury [Unknown]
  - Hypokalaemia [Unknown]
  - Cellulitis [Unknown]
  - Diastolic dysfunction [Unknown]
  - Obstructive sleep apnoea syndrome [Unknown]
  - Peripheral swelling [Unknown]
  - Rash [Unknown]
  - Peripheral vascular disorder [Unknown]
  - Essential hypertension [Unknown]
  - Arteriosclerosis [Unknown]
  - Coronary artery disease [Unknown]
  - Obesity [Unknown]
  - Impaired healing [Unknown]
  - Oedema peripheral [Unknown]
  - Hypotension [Unknown]
  - Gastrooesophageal reflux disease [Unknown]
  - Ecchymosis [Unknown]
  - Tenderness [Unknown]

NARRATIVE: CASE EVENT DATE: 20210601
